FAERS Safety Report 7885071-2 (Version None)
Quarter: 2011Q4

REPORT INFORMATION
  Report Type: 
  Country: None (occurrence: None)
  Receive Date: 20111102
  Receipt Date: 20111028
  Transmission Date: 20120403
  Serious: Yes (Hospitalization, Other)
  Sender: FDA-Public Use
  Company Number: US-BRISTOL-MYERS SQUIBB COMPANY-13448188

PATIENT
  Age: 23 Year
  Sex: Male

DRUGS (8)
  1. MYCOPHENOLATE MOFETIL (CELLCEPT) [Suspect]
     Dates: start: 20060503
  2. SEPTRA [Concomitant]
     Dates: start: 20060503
  3. VALGANCICLOVIR [Concomitant]
  4. PROGRAF [Concomitant]
     Dates: start: 20060726
  5. METHYLPREDNISOLONE [Concomitant]
     Route: 042
     Dates: start: 20060717, end: 20060717
  6. BELATACEPT [Suspect]
     Indication: RENAL TRANSPLANT
     Route: 042
     Dates: start: 20060503, end: 20060713
  7. PREDNISONE [Suspect]
     Dates: start: 20060503
  8. THYMOGLOBULIN [Concomitant]
     Dates: start: 20060718, end: 20060727

REACTIONS (5)
  - EPSTEIN-BARR VIRUS ASSOCIATED LYMPHOPROLIFERATIVE DISORDER [None]
  - RENAL HAEMORRHAGE [None]
  - KIDNEY TRANSPLANT REJECTION [None]
  - NEUTROPENIA [None]
  - BK VIRUS INFECTION [None]
